FAERS Safety Report 6247900-8 (Version None)
Quarter: 2009Q2

REPORT INFORMATION
  Report Type: 
  Country: None (occurrence: None)
  Receive Date: 20090626
  Receipt Date: 20090616
  Transmission Date: 20091009
  Serious: Yes (Other)
  Sender: FDA-Public Use
  Company Number: GB-WYE-G03860509

PATIENT
  Age: 52 Year
  Sex: Male
  Weight: 80 kg

DRUGS (10)
  1. METHYLNALTREXONE BROMIDE [Suspect]
     Indication: CONSTIPATION
     Dosage: 12 MG EVERY 1 TOT
     Route: 058
     Dates: start: 20090429, end: 20090502
  2. FRUSEMIDE [Concomitant]
     Indication: OEDEMA
     Dosage: 40MG, FREQUENCY UNSPECIFIED
  3. FYBOGEL [Concomitant]
     Indication: CONSTIPATION
     Route: 048
  4. TEMAZEPAM [Concomitant]
     Indication: INSOMNIA
     Dosage: 20MG, FREQUENCY UNSPECIFIED
  5. OXYCONTIN [Concomitant]
     Indication: PAIN
  6. OXYNORM [Concomitant]
     Indication: PAIN
     Dosage: 20 MG EVERY 1 PRN
  7. ACETAMINOPHEN [Concomitant]
     Indication: PAIN
     Route: 048
  8. SENNA [Concomitant]
     Indication: CONSTIPATION
     Route: 048
  9. DEXAMETHASONE [Concomitant]
     Dosage: UNKNOWN
     Route: 048
     Dates: end: 20090501
  10. NULYTELY [Concomitant]
     Indication: CONSTIPATION
     Route: 048

REACTIONS (3)
  - ABDOMINAL PAIN [None]
  - DRUG INEFFECTIVE [None]
  - MALAISE [None]
